FAERS Safety Report 5262111-0 (Version None)
Quarter: 2007Q1

REPORT INFORMATION
  Report Type: 
  Country: None (occurrence: None)
  Receive Date: 20070311
  Receipt Date: 20070228
  Transmission Date: 20070707
  Serious: Yes (Hospitalization)
  Sender: FDA-Public Use
  Company Number: 2006UW05313

PATIENT
  Age: 628 Month
  Sex: Female

DRUGS (6)
  1. SEROQUEL [Suspect]
     Indication: BIPOLAR I DISORDER
     Route: 048
     Dates: start: 20000101, end: 20000901
  2. SEROQUEL [Suspect]
     Route: 048
     Dates: start: 20050601, end: 20051101
  3. ZYPREXA [Suspect]
     Indication: BIPOLAR I DISORDER
     Dosage: 5 TO 15 MG
     Dates: start: 20001001, end: 20040601
  4. RISPERDAL [Suspect]
     Indication: BIPOLAR I DISORDER
     Dates: start: 20010101, end: 20030101
  5. LITHIUM CARBONATE [Suspect]
  6. GEODON [Concomitant]
     Dates: start: 20050101

REACTIONS (7)
  - BLADDER OPERATION [None]
  - BLOOD CHOLESTEROL INCREASED [None]
  - DIABETES MELLITUS [None]
  - FEMORAL NERVE INJURY [None]
  - GLYCOSURIA [None]
  - MANIA [None]
  - THERAPEUTIC AGENT TOXICITY [None]
